FAERS Safety Report 8710454 (Version 2)
Quarter: 2013Q4

REPORT INFORMATION
  Report Type: Report from Study
  Country: US (occurrence: US)
  Receive Date: 20120807
  Receipt Date: 20131101
  Transmission Date: 20140711
  Serious: No
  Sender: FDA-Public Use
  Company Number: US-009507513-1207USA004029

PATIENT
  Age: 53 Year
  Sex: Female

DRUGS (7)
  1. VICTRELIS [Suspect]
     Dosage: 4 DF, TID
     Route: 048
  2. PEGINTRON [Suspect]
  3. REBETOL [Suspect]
  4. NEUPOGEN [Suspect]
  5. PROZAC [Concomitant]
  6. TYLENOL [Concomitant]
  7. ESTRADIOL (+) NORETHINDRONE [Concomitant]

REACTIONS (3)
  - Nasal dryness [Unknown]
  - Epistaxis [Unknown]
  - Anaemia [Unknown]
